FAERS Safety Report 8106525-X (Version None)
Quarter: 2012Q1

REPORT INFORMATION
  Report Type: 
  Country: None (occurrence: None)
  Receive Date: 20120202
  Receipt Date: 20120126
  Transmission Date: 20120608
  Serious: Yes (Other)
  Sender: FDA-Public Use
  Company Number: DK-TEVA-319471ISR

PATIENT
  Sex: Male

DRUGS (2)
  1. REMICADE [Suspect]
     Indication: RHEUMATOID ARTHRITIS
     Dosage: STOPDATO/SENESTE I BEHANDLINGSSERIEN: 14OKT2011
     Dates: start: 20030414, end: 20111014
  2. METHOTREXATE [Suspect]
     Indication: RHEUMATOID ARTHRITIS
     Dosage: STOPDATO/SENESTE I BEHANDLINGSSERIEN: 14OKT2011
     Route: 048
     Dates: start: 20030414, end: 20111014

REACTIONS (1)
  - COLON CANCER [None]
